FAERS Safety Report 14028951 (Version 6)
Quarter: 2019Q2

REPORT INFORMATION
  Report Type: Report from Study
  Country: US (occurrence: US)
  Receive Date: 20170930
  Receipt Date: 20190426
  Transmission Date: 20190711
  Serious: Yes (Disabling, Other)
  Sender: FDA-Public Use
  Company Number: US-SA-2017SA098413

PATIENT
  Age: 44 Year
  Sex: Female

DRUGS (2)
  1. CAMPATH [Concomitant]
     Active Substance: ALEMTUZUMAB
     Dosage: UNK, 3 COURSES
     Dates: start: 20130101, end: 201401
  2. TERIFLUNOMIDE. [Suspect]
     Active Substance: TERIFLUNOMIDE
     Indication: MULTIPLE SCLEROSIS
     Dosage: 14 MG, QD
     Route: 048
     Dates: start: 20160707, end: 20190220

REACTIONS (9)
  - Disability [Not Recovered/Not Resolved]
  - Hypersensitivity [Unknown]
  - Sinusitis [Unknown]
  - Blood urine present [Unknown]
  - Fatigue [Not Recovered/Not Resolved]
  - Rhinorrhoea [Not Recovered/Not Resolved]
  - Memory impairment [Not Recovered/Not Resolved]
  - Unevaluable event [Not Recovered/Not Resolved]
  - Diarrhoea [Not Recovered/Not Resolved]

NARRATIVE: CASE EVENT DATE: 2015
